FAERS Safety Report 5236858-6 (Version None)
Quarter: 2007Q1

REPORT INFORMATION
  Report Type: 
  Country: None (occurrence: None)
  Receive Date: 20070213
  Receipt Date: 20070206
  Transmission Date: 20070707
  Serious: Yes (Death, Other)
  Sender: FDA-Public Use
  Company Number: FR-JNJFOC-20070100065

PATIENT
  Sex: Male
  Weight: 55 kg

DRUGS (5)
  1. DURAGESIC-100 [Suspect]
     Route: 062
  2. DURAGESIC-100 [Suspect]
     Indication: CANCER PAIN
     Route: 062
  3. ACTIQ [Suspect]
     Indication: CANCER PAIN
  4. AMITRIPTYLINE HCL [Concomitant]
     Route: 065
  5. AUGMENTIN '125' [Concomitant]
     Route: 065

REACTIONS (3)
  - DEATH [None]
  - DELIRIUM [None]
  - HALLUCINATION, VISUAL [None]
